FAERS Safety Report 10373753 (Version 1)
Quarter: 2014Q1

REPORT INFORMATION
  Report Type: Spontaneous
  Country: US (occurrence: None)
  Receive Date: 20140306
  Receipt Date: 20140306
  Transmission Date: 20141002
  Serious: Yes (Other)
  Sender: FDA-Public Use
  Company Number: 163-21880-13050894

PATIENT
  Age: 70 Year
  Sex: Female
  Weight: 64.41 kg

DRUGS (14)
  1. REVLIMID (LENALIDOMIDE) (25 MILLIGRAM, CAPSULES) [Suspect]
     Indication: PLASMA CELL MYELOMA
     Dosage: 1 IN 1 D
     Route: 048
     Dates: start: 201005
  2. CARFILZOMIB [Concomitant]
  3. DEXAMETHASONE [Concomitant]
  4. ELOTUZUMAB [Concomitant]
  5. ACYCLOVIR [Concomitant]
  6. FISH OIL CONCENTRATE [Concomitant]
  7. HYDROCODONE BIT/ACETAMINOPHEN (VICODIN) [Concomitant]
  8. LASIX (FUROSEMIDE) [Concomitant]
  9. NEURONTIN (GABAPENTIN) [Concomitant]
  10. POTASSIUM CHLORIDE [Concomitant]
  11. PRILOSEC (OMEPRAZOLE) [Concomitant]
  12. VITAMIN B COMPLEX (B-KOMPLEX ^LECIVA^) [Concomitant]
  13. ZESTRIL (LISINOPRIL) [Concomitant]
  14. ZOFRAN (ONDANSETRON HYDROCHLORIDE) [Concomitant]

REACTIONS (2)
  - Pulmonary embolism [None]
  - Plasma cell myeloma [None]
